FAERS Safety Report 10524362 (Version 2)
Quarter: 2014Q4

REPORT INFORMATION
  Report Type: Spontaneous
  Country: DE (occurrence: DE)
  Receive Date: 20141017
  Receipt Date: 20141205
  Transmission Date: 20150528
  Serious: Yes (Other)
  Sender: FDA-Public Use
  Company Number: DE-SA-2014SA139924

PATIENT
  Age: 38 Year
  Sex: Male

DRUGS (7)
  1. CETIRIZINE HYDROCHLORIDE. [Concomitant]
     Active Substance: CETIRIZINE HYDROCHLORIDE
  2. ACIC [Concomitant]
  3. PERFALGAN [Concomitant]
     Active Substance: ACETAMINOPHEN
  4. PARACETAMOL [Concomitant]
     Active Substance: ACETAMINOPHEN
  5. FAMPYRA [Concomitant]
     Active Substance: DALFAMPRIDINE
  6. LEMTRADA [Suspect]
     Active Substance: ALEMTUZUMAB
     Indication: MULTIPLE SCLEROSIS
     Route: 041
     Dates: start: 20140929, end: 20141003
  7. OPIPRAMOL [Concomitant]
     Active Substance: OPIPRAMOL

REACTIONS (3)
  - Ophthalmoplegia [Recovered/Resolved]
  - Hemiparesis [Recovered/Resolved]
  - Pyrexia [Recovered/Resolved]

NARRATIVE: CASE EVENT DATE: 20140929
